FAERS Safety Report 8639694 (Version 3)
Quarter: 2013Q4

REPORT INFORMATION
  Report Type: Spontaneous
  Country: JP (occurrence: JP)
  Receive Date: 20120627
  Receipt Date: 20131105
  Transmission Date: 20140711
  Serious: Yes (Hospitalization, Other)
  Sender: FDA-Public Use
  Company Number: JP-009507513-1206USA04116

PATIENT
  Age: 72 Year
  Sex: Female

DRUGS (1)
  1. BONALON [Suspect]
     Dosage: 5 MG, QD
     Route: 048
     Dates: start: 200604, end: 201007

REACTIONS (3)
  - Pathological fracture [Unknown]
  - Osteonecrosis of jaw [Unknown]
  - Osteomyelitis [Unknown]
